FAERS Safety Report 5877346-3 (Version None)
Quarter: 2008Q3

REPORT INFORMATION
  Report Type: 
  Country: None (occurrence: None)
  Receive Date: 20080908
  Receipt Date: 20080827
  Transmission Date: 20090109
  Serious: Yes (Other)
  Sender: FDA-Public Use
  Company Number: GXKR2008IT08422

PATIENT
  Sex: Female

DRUGS (1)
  1. SIMVASTATIN [Suspect]

REACTIONS (3)
  - HALLUCINATION [None]
  - INSOMNIA [None]
  - MYALGIA [None]
